FAERS Safety Report 25427902 (Version 1)
Quarter: 2025Q2

REPORT INFORMATION
  Report Type: Spontaneous
  Country: DE (occurrence: DE)
  Receive Date: 20250612
  Receipt Date: 20250612
  Transmission Date: 20250717
  Serious: Yes (Other)
  Sender: BAYER HEALTHCARE PHARMACEUTICALS INC.
  Company Number: DE-BAYER-2025A074143

PATIENT
  Age: 33 Year
  Sex: Female

DRUGS (2)
  1. BILTRICIDE [Suspect]
     Active Substance: PRAZIQUANTEL
     Indication: Cestode infection
     Route: 048
     Dates: start: 20250115, end: 20250121
  2. BILTRICIDE [Suspect]
     Active Substance: PRAZIQUANTEL
     Indication: Enterobiasis

REACTIONS (9)
  - Progressive muscular atrophy [Not Recovered/Not Resolved]
  - Resting tremor [Recovered/Resolved]
  - Insomnia [Recovered/Resolved]
  - Thirst [Recovered/Resolved]
  - Decreased appetite [Recovered/Resolved]
  - Pollakiuria [Recovered/Resolved]
  - General physical health deterioration [Recovered/Resolved]
  - Muscle twitching [Not Recovered/Not Resolved]
  - Off label use [None]

NARRATIVE: CASE EVENT DATE: 20250101
